FAERS Safety Report 5473322-3 (Version None)
Quarter: 2007Q4

REPORT INFORMATION
  Report Type: 
  Country: None (occurrence: None)
  Receive Date: 20071001
  Receipt Date: 20070920
  Transmission Date: 20080405
  Serious: Yes (Life-Threatening, Hospitalization)
  Sender: FDA-Public Use
  Company Number: US-JNJFOC-20070904605

PATIENT
  Sex: Female
  Weight: 92.99 kg

DRUGS (3)
  1. DURAGESIC-100 [Suspect]
     Indication: PAIN
     Dosage: 100UG/HR AND 25UG/HR
     Route: 062
  2. MORPHINE [Concomitant]
     Indication: PAIN MANAGEMENT
  3. PERCOCET [Concomitant]
     Indication: ARTHRITIS
     Route: 048

REACTIONS (6)
  - CARDIAC FAILURE CONGESTIVE [None]
  - CARDIAC NEOPLASM UNSPECIFIED [None]
  - CARDIOMYOPATHY [None]
  - DEPRESSION [None]
  - DIABETES MELLITUS [None]
  - PANCREATITIS [None]
